FAERS Safety Report 9416429 (Version 1)
Quarter: 2013Q3

REPORT INFORMATION
  Report Type: Spontaneous
  Country: US (occurrence: None)
  Receive Date: 20130723
  Receipt Date: 20130723
  Transmission Date: 20140515
  Serious: No
  Sender: FDA-Public Use
  Company Number: None

PATIENT
  Age: 56 Year
  Sex: Female

DRUGS (1)
  1. METRONIDAZOLE [Suspect]
     Route: 048
     Dates: start: 20130621, end: 20130627

REACTIONS (12)
  - Agitation [None]
  - Anxiety [None]
  - Dyspnoea [None]
  - Generalised oedema [None]
  - Neuralgia [None]
  - Urticaria [None]
  - Influenza like illness [None]
  - Insomnia [None]
  - Nausea [None]
  - Vomiting [None]
  - Pyrexia [None]
  - Bedridden [None]
